FAERS Safety Report 7273934-0 (Version None)
Quarter: 2011Q1

REPORT INFORMATION
  Report Type: 
  Country: None (occurrence: None)
  Receive Date: 20110203
  Receipt Date: 20110201
  Transmission Date: 20110831
  Serious: Yes (Hospitalization, Other)
  Sender: FDA-Public Use
  Company Number: US-PFIZER INC-2010036879

PATIENT
  Sex: Male

DRUGS (1)
  1. DILANTIN [Suspect]
     Indication: HEAD INJURY
     Dosage: UNK
     Route: 048
     Dates: start: 20040101

REACTIONS (4)
  - HYPERSENSITIVITY [None]
  - TOXIC EPIDERMAL NECROLYSIS [None]
  - PROSTATE CANCER [None]
  - IMMUNE SYSTEM DISORDER [None]
